FAERS Safety Report 19417288 (Version 1)
Quarter: 2021Q2

REPORT INFORMATION
  Report Type: Spontaneous
  Country: JP (occurrence: JP)
  Receive Date: 20210614
  Receipt Date: 20210614
  Transmission Date: 20210717
  Serious: Yes (Congenital Anomaly)
  Sender: FDA-Public Use
  Company Number: JP-LUNDBECK-DKLU3034217

PATIENT
  Age: 16 Month
  Weight: 11.35 kg

DRUGS (5)
  1. SABRIL [Suspect]
     Active Substance: VIGABATRIN
     Route: 048
     Dates: start: 20210126, end: 20210427
  2. TOPIRAMATE. [Concomitant]
     Active Substance: TOPIRAMATE
     Indication: PRODUCT USED FOR UNKNOWN INDICATION
     Route: 065
     Dates: start: 20190401
  3. SABRIL [Suspect]
     Active Substance: VIGABATRIN
     Indication: PRODUCT USED FOR UNKNOWN INDICATION
     Route: 048
     Dates: start: 20190604, end: 20201028
  4. SABRIL [Suspect]
     Active Substance: VIGABATRIN
     Route: 048
     Dates: start: 20190409
  5. SABRIL [Suspect]
     Active Substance: VIGABATRIN
     Route: 048
     Dates: start: 20201029, end: 20210125

REACTIONS (5)
  - Asteatosis [Not Recovered/Not Resolved]
  - Dental caries [Recovered/Resolved]
  - Dermatitis atopic [Not Recovered/Not Resolved]
  - Renal cyst [Not Recovered/Not Resolved]
  - Chalazion [Recovered/Resolved]

NARRATIVE: CASE EVENT DATE: 20200409
